FAERS Safety Report 21109624 (Version 1)
Quarter: 2022Q3

REPORT INFORMATION
  Report Type: Spontaneous
  Country: US (occurrence: US)
  Receive Date: 20220721
  Receipt Date: 20220721
  Transmission Date: 20221026
  Serious: No
  Sender: FDA-Public Use
  Company Number: US-ENDO PHARMACEUTICALS INC-2022-002899

PATIENT
  Sex: Female

DRUGS (3)
  1. QWO [Suspect]
     Active Substance: COLLAGENASE CLOSTRIDIUM HISTOLYTICUM-AAES
     Indication: Cellulite
     Dosage: 0.23 MG/ML, UNKNOWN (TREATMENT ONE)
     Route: 065
     Dates: start: 20220117
  2. QWO [Suspect]
     Active Substance: COLLAGENASE CLOSTRIDIUM HISTOLYTICUM-AAES
     Dosage: 0.23 MG/ML, UNKNOWN (TREATMENT TWO)
     Route: 065
     Dates: start: 20220207
  3. QWO [Suspect]
     Active Substance: COLLAGENASE CLOSTRIDIUM HISTOLYTICUM-AAES
     Dosage: 0.23 MG/ML, UNKNOWN (TREATMENT THREE)
     Route: 065
     Dates: start: 20220228

REACTIONS (4)
  - Lipodystrophy acquired [Unknown]
  - Injection site discolouration [Not Recovered/Not Resolved]
  - Post inflammatory pigmentation change [Unknown]
  - Drug ineffective [Unknown]

NARRATIVE: CASE EVENT DATE: 20220101
